FAERS Safety Report 18550752 (Version 4)
Quarter: 2021Q4

REPORT INFORMATION
  Report Type: Spontaneous
  Country: US (occurrence: US)
  Receive Date: 20201126
  Receipt Date: 20211229
  Transmission Date: 20220303
  Serious: No
  Sender: FDA-Public Use
  Company Number: US-PFIZER INC-2020466107

PATIENT
  Age: 61 Year
  Sex: Female
  Weight: 81.633 kg

DRUGS (10)
  1. IBRANCE [Suspect]
     Active Substance: PALBOCICLIB
     Indication: Breast cancer female
     Dosage: 125 MG, CYCLIC (ONCE DAILY FOR 21 DAYS ON, 7 DAYS OFF)
     Route: 048
     Dates: start: 20201105
  2. IBRANCE [Suspect]
     Active Substance: PALBOCICLIB
     Dosage: 125 MG, CYCLIC (ONCE DAILY FOR 21 DAYS ON, 7 DAYS OFF)
     Route: 048
     Dates: start: 20201105
  3. CALCIUM CARBONATE [Concomitant]
     Active Substance: CALCIUM CARBONATE
     Dosage: UNK
  4. DICLOFENAC [Concomitant]
     Active Substance: DICLOFENAC
     Dosage: UNK
  5. FASLODEX [Concomitant]
     Active Substance: FULVESTRANT
     Dosage: UNK
  6. ZINC [Concomitant]
     Active Substance: ZINC
     Dosage: UNK
  7. ZINC CHLORIDE [Concomitant]
     Active Substance: ZINC CHLORIDE
  8. ASPIRIN [Concomitant]
     Active Substance: ASPIRIN
  9. XGEVA [Concomitant]
     Active Substance: DENOSUMAB
  10. ASPIRIN [Concomitant]
     Active Substance: ASPIRIN

REACTIONS (4)
  - Fatigue [Unknown]
  - Asthenia [Unknown]
  - Breast pain [Unknown]
  - Breast swelling [Unknown]
